FAERS Safety Report 7264823-6 (Version None)
Quarter: 2011Q1

REPORT INFORMATION
  Report Type: 
  Country: None (occurrence: None)
  Receive Date: 20110131
  Receipt Date: 20110124
  Transmission Date: 20110831
  Serious: Yes (Hospitalization)
  Sender: FDA-Public Use
  Company Number: US-BRISTOL-MYERS SQUIBB COMPANY-15506884

PATIENT
  Age: 75 Year
  Sex: Male
  Weight: 88 kg

DRUGS (15)
  1. GLIMEPIRIDE [Concomitant]
  2. ENALAPRIL MALEATE [Concomitant]
  3. COREG [Concomitant]
  4. ZOCOR [Concomitant]
  5. LUNESTA [Concomitant]
  6. AMIODARONE HCL [Concomitant]
     Indication: ATRIAL FIBRILLATION
  7. LANTUS [Concomitant]
  8. PROTONIX [Concomitant]
  9. TRICOR [Concomitant]
  10. HUMALOG [Concomitant]
  11. NIZATIDINE [Concomitant]
  12. ONGLYZA [Suspect]
  13. COUMADIN [Concomitant]
  14. ZETIA [Concomitant]
  15. FUROSEMIDE [Concomitant]

REACTIONS (3)
  - RENAL IMPAIRMENT [None]
  - WEIGHT INCREASED [None]
  - DYSPNOEA [None]
